FAERS Safety Report 7561780-X (Version None)
Quarter: 2011Q2

REPORT INFORMATION
  Report Type: 
  Country: None (occurrence: None)
  Receive Date: 20110621
  Receipt Date: 20110615
  Transmission Date: 20111010
  Serious: Yes (Hospitalization)
  Sender: FDA-Public Use
  Company Number: US-B.I. PHARMACEUTICALS,INC./RIDGEFIELD-2011-BP-15436BP

PATIENT
  Age: 58 Year
  Sex: Male

DRUGS (1)
  1. PRADAXA [Suspect]
     Dates: start: 20110401, end: 20110614

REACTIONS (2)
  - RENAL FAILURE [None]
  - BLOOD CREATINE [None]
